FAERS Safety Report 7992963-2 (Version None)
Quarter: 2011Q4

REPORT INFORMATION
  Report Type: 
  Country: None (occurrence: None)
  Receive Date: 20111219
  Receipt Date: 20110413
  Transmission Date: 20120403
  Serious: No
  Sender: FDA-Public Use
  Company Number: US-ASTRAZENECA-2011SE21979

PATIENT
  Age: 45 Year
  Sex: Male

DRUGS (1)
  1. CRESTOR [Suspect]
     Route: 048

REACTIONS (5)
  - HEART RATE ABNORMAL [None]
  - ELECTROCARDIOGRAM ABNORMAL [None]
  - GOUT [None]
  - DYSPNOEA [None]
  - CHEST PAIN [None]
